FAERS Safety Report 26073766 (Version 2)
Quarter: 2025Q4

REPORT INFORMATION
  Report Type: Spontaneous
  Country: US (occurrence: US)
  Receive Date: 20251121
  Receipt Date: 20251128
  Transmission Date: 20260118
  Serious: No
  Sender: AMGEN
  Company Number: US-AMGEN-USASP2025229641

PATIENT
  Age: 19 Year
  Sex: Female

DRUGS (1)
  1. REPATHA [Suspect]
     Active Substance: EVOLOCUMAB
     Indication: Blood cholesterol abnormal
     Dosage: UNK UNK, Q2WK (140 MILLIGRAM)
     Route: 058
     Dates: start: 2025

REACTIONS (1)
  - Device difficult to use [Unknown]

NARRATIVE: CASE EVENT DATE: 20251109
